FAERS Safety Report 6760798-4 (Version None)
Quarter: 2010Q2

REPORT INFORMATION
  Report Type: 
  Country: None (occurrence: None)
  Receive Date: 20100608
  Receipt Date: 20100604
  Transmission Date: 20101027
  Serious: Yes (Hospitalization, Disabling, Other)
  Sender: FDA-Public Use
  Company Number: US-MERCK-0805USA00713

PATIENT
  Age: 55 Year
  Sex: Female
  Weight: 53 kg

DRUGS (3)
  1. FOSAMAX [Suspect]
     Route: 048
     Dates: start: 19970101, end: 19990101
  2. FOSAMAX [Suspect]
     Route: 065
     Dates: start: 19990101
  3. ACTONEL [Suspect]
     Indication: OSTEOPOROSIS
     Route: 065
     Dates: start: 20040901

REACTIONS (52)
  - ABSCESS [None]
  - ABSCESS JAW [None]
  - ANGIOEDEMA [None]
  - ANGIOPATHY [None]
  - ARTHRITIS [None]
  - ARTHROPATHY [None]
  - ASTHENIA [None]
  - ASTHMA [None]
  - BACK INJURY [None]
  - BACK PAIN [None]
  - BODY HEIGHT DECREASED [None]
  - BONE DENSITY DECREASED [None]
  - C-REACTIVE PROTEIN INCREASED [None]
  - CHRONIC OBSTRUCTIVE PULMONARY DISEASE [None]
  - CONTUSION [None]
  - CYSTITIS [None]
  - DRUG EFFECT DECREASED [None]
  - DRUG INEFFECTIVE [None]
  - DRUG INTOLERANCE [None]
  - ELECTROLYTE IMBALANCE [None]
  - FALL [None]
  - FATIGUE [None]
  - GANGRENE [None]
  - GASTROINTESTINAL INFLAMMATION [None]
  - GASTROOESOPHAGEAL REFLUX DISEASE [None]
  - GINGIVITIS [None]
  - HOT FLUSH [None]
  - HYPERLIPIDAEMIA [None]
  - HYPERTENSION [None]
  - HYPOVITAMINOSIS [None]
  - INFECTION [None]
  - JAW DISORDER [None]
  - JAW FRACTURE [None]
  - MALNUTRITION [None]
  - MENTAL DISORDER [None]
  - NIGHT SWEATS [None]
  - OEDEMA PERIPHERAL [None]
  - OSTEOMYELITIS [None]
  - OSTEONECROSIS OF JAW [None]
  - OSTEOPENIA [None]
  - OSTEOPOROSIS [None]
  - RENAL FAILURE CHRONIC [None]
  - SCOLIOSIS [None]
  - SENSITIVITY OF TEETH [None]
  - SKIN DISORDER [None]
  - SPINAL DISORDER [None]
  - SPINAL OSTEOARTHRITIS [None]
  - TOOTH DISORDER [None]
  - TRANSIENT ISCHAEMIC ATTACK [None]
  - VOMITING [None]
  - WEIGHT DECREASED [None]
  - WHEEZING [None]
